FAERS Safety Report 26205728 (Version 1)
Quarter: 2025Q4

REPORT INFORMATION
  Report Type: Spontaneous
  Country: US (occurrence: US)
  Receive Date: 20251229
  Receipt Date: 20251229
  Transmission Date: 20260117
  Serious: No
  Sender: SANOFI AVENTIS
  Company Number: US-SA-2025SA386733

PATIENT
  Age: 64 Year
  Sex: Female

DRUGS (6)
  1. DUPIXENT [Suspect]
     Active Substance: DUPILUMAB
     Indication: Asthma
     Dosage: UNK
     Route: 058
     Dates: start: 20240409
  2. PREDNISONE [Concomitant]
     Active Substance: PREDNISONE
  3. CARBAMAZEPINE [Concomitant]
     Active Substance: CARBAMAZEPINE
  4. VITAMINS [Concomitant]
     Active Substance: VITAMINS
  5. BUPROPION [Concomitant]
     Active Substance: BUPROPION
  6. ALLERCLEAR D [Concomitant]

REACTIONS (1)
  - Intentional product misuse [Unknown]
